FAERS Safety Report 9494296 (Version 1)
Quarter: 2013Q3

REPORT INFORMATION
  Report Type: Spontaneous
  Country: US (occurrence: US)
  Receive Date: 20130903
  Receipt Date: 20130903
  Transmission Date: 20140515
  Serious: Yes (Other)
  Sender: FDA-Public Use
  Company Number: US-JNJFOC-20130810543

PATIENT
  Sex: 0

DRUGS (9)
  1. DOXORUBICIN [Suspect]
     Indication: LYMPHOMA
     Dosage: MEDIAN CUMULATIVE DOSE: 240 MG/M2; RANGE:50 TO 375 MG/M2
     Route: 042
  2. DOXORUBICIN [Suspect]
     Indication: LEUKAEMIA
     Dosage: MEDIAN CUMULATIVE DOSE: 240 MG/M2; RANGE:50 TO 375 MG/M2
     Route: 042
  3. DOXORUBICIN [Suspect]
     Indication: BREAST CANCER
     Dosage: MEDIAN CUMULATIVE DOSE: 240 MG/M2; RANGE:50 TO 375 MG/M2
     Route: 042
  4. CYCLOPHOSPHAMIDE [Suspect]
     Indication: LYMPHOMA
     Dosage: MEDIAN CUMULATIVE DOSE: 180 MG/M2; RANGE:36 TO 500 MG/M2
     Route: 065
  5. CYCLOPHOSPHAMIDE [Suspect]
     Indication: LEUKAEMIA
     Dosage: MEDIAN CUMULATIVE DOSE: 180 MG/M2; RANGE:36 TO 500 MG/M2
     Route: 065
  6. CYCLOPHOSPHAMIDE [Suspect]
     Indication: BREAST CANCER
     Dosage: MEDIAN CUMULATIVE DOSE: 180 MG/M2; RANGE:36 TO 500 MG/M2
     Route: 065
  7. TRASTUZUMAB [Suspect]
     Indication: LYMPHOMA
     Dosage: MEDIAN CUMULATIVE DOSE: 180 MG/M2; RANGE:36 TO 500 MG/M2
     Route: 065
  8. TRASTUZUMAB [Suspect]
     Indication: LEUKAEMIA
     Dosage: MEDIAN CUMULATIVE DOSE: 180 MG/M2; RANGE:36 TO 500 MG/M2
     Route: 065
  9. TRASTUZUMAB [Suspect]
     Indication: BREAST CANCER
     Dosage: MEDIAN CUMULATIVE DOSE: 180 MG/M2; RANGE:36 TO 500 MG/M2
     Route: 065

REACTIONS (6)
  - Ventricular internal diameter abnormal [Unknown]
  - Heart injury [Unknown]
  - Ejection fraction decreased [Unknown]
  - Myocardial strain [Unknown]
  - Aortic disorder [Unknown]
  - Quality of life decreased [Unknown]
